FAERS Safety Report 8006991-4 (Version None)
Quarter: 2011Q4

REPORT INFORMATION
  Report Type: 
  Country: None (occurrence: None)
  Receive Date: 20111227
  Receipt Date: 20111218
  Transmission Date: 20120403
  Serious: Yes (Hospitalization)
  Sender: FDA-Public Use
  Company Number: PHHO2011IL021225

PATIENT
  Sex: Male
  Weight: 79 kg

DRUGS (7)
  1. FUROSEMIDE [Suspect]
     Indication: CARDIAC FAILURE CHRONIC
     Dosage: 80 MG, QD
     Dates: start: 20111110
  2. METOLAZONE [Suspect]
     Indication: CARDIAC FAILURE CHRONIC
     Dosage: 2.5 MG, QD
     Dates: start: 20111117
  3. BLINDED PLACEBO [Suspect]
     Indication: CARDIAC FAILURE
     Dosage: DOUBLE BLINDED
     Route: 048
     Dates: start: 20111102, end: 20111217
  4. ENALAPRIL MALEATE [Suspect]
     Indication: CARDIAC FAILURE CHRONIC
     Dosage: 2.5 MG, BID
     Dates: start: 20111117
  5. BLINDED ALISKIREN [Suspect]
     Indication: CARDIAC FAILURE
     Dosage: DOUBLE BLINDED
     Route: 048
     Dates: start: 20111102, end: 20111217
  6. BLINDED NO TREATMENT RECEIVED [Suspect]
     Indication: CARDIAC FAILURE
     Dosage: DOUBLE BLINDED
     Route: 048
     Dates: start: 20111102, end: 20111217
  7. SPIRONOLACTONE [Suspect]
     Indication: CARDIAC FAILURE CHRONIC
     Dosage: 25 MG, QD
     Dates: start: 20111117

REACTIONS (2)
  - RENAL FAILURE ACUTE [None]
  - PULMONARY CONGESTION [None]
